FAERS Safety Report 7365427-7 (Version None)
Quarter: 2011Q1

REPORT INFORMATION
  Report Type: 
  Country: None (occurrence: None)
  Receive Date: 20110310
  Receipt Date: 20100723
  Transmission Date: 20110831
  Serious: Yes (Other)
  Sender: FDA-Public Use
  Company Number: JP-20100033

PATIENT
  Age: 82 Year
  Sex: Male

DRUGS (1)
  1. (LIPIODOL ULTRA FLUIDE) (ETHIODIZED OIL) [Suspect]
     Indication: THERAPEUTIC EMBOLISATION

REACTIONS (3)
  - OFF LABEL USE [None]
  - ABDOMINAL ADHESIONS [None]
  - TUMOUR THROMBOSIS [None]
